FAERS Safety Report 7741727-3 (Version None)
Quarter: 2011Q3

REPORT INFORMATION
  Report Type: 
  Country: None (occurrence: None)
  Receive Date: 20110912
  Receipt Date: 20110831
  Transmission Date: 20111222
  Serious: Yes (Death, Hospitalization, Other)
  Sender: FDA-Public Use
  Company Number: US-BIOGENIDEC-2005BI021306

PATIENT
  Sex: Female

DRUGS (3)
  1. AVONEX [Suspect]
     Route: 030
     Dates: start: 20080901, end: 20110507
  2. AVONEX [Suspect]
     Route: 030
     Dates: start: 20031001
  3. AVONEX [Suspect]
     Indication: MULTIPLE SCLEROSIS
     Route: 030
     Dates: start: 19980601, end: 20031001

REACTIONS (4)
  - CEREBROVASCULAR ACCIDENT [None]
  - BREAST CANCER [None]
  - COLON CANCER [None]
  - PNEUMOTHORAX [None]
